FAERS Safety Report 6767289-5 (Version None)
Quarter: 2010Q2

REPORT INFORMATION
  Report Type: 
  Country: None (occurrence: None)
  Receive Date: 20100610
  Receipt Date: 20100601
  Transmission Date: 20101027
  Serious: Yes (Death)
  Sender: FDA-Public Use
  Company Number: OSCN-PR-1006S-0139

PATIENT
  Sex: Female

DRUGS (1)
  1. OMNISCAN [Suspect]
     Indication: DRUG USE FOR UNKNOWN INDICATION
     Dosage: FOUR PROCEDURES- DATES NOT SPECIFIED

REACTIONS (1)
  - NEPHROGENIC SYSTEMIC FIBROSIS [None]
